FAERS Safety Report 6186626-6 (Version None)
Quarter: 2009Q2

REPORT INFORMATION
  Report Type: 
  Country: None (occurrence: None)
  Receive Date: 20090512
  Receipt Date: 20090511
  Transmission Date: 20091009
  Serious: Yes (Other)
  Sender: FDA-Public Use
  Company Number: DE-PFIZER INC-2009175522

PATIENT
  Age: 81 Year

DRUGS (1)
  1. SOBELIN [Suspect]
     Indication: ERYSIPELAS
     Dosage: 1200 MG, 1X/DAY
     Route: 048
     Dates: start: 20090116

REACTIONS (1)
  - OESOPHAGITIS [None]
